FAERS Safety Report 5834049-9 (Version None)
Quarter: 2008Q3

REPORT INFORMATION
  Report Type: 
  Country: None (occurrence: None)
  Receive Date: 20080805
  Receipt Date: 20080725
  Transmission Date: 20090109
  Serious: Yes (Other)
  Sender: FDA-Public Use
  Company Number: US-ELI_LILLY_AND_COMPANY-US200807005214

PATIENT
  Sex: Female

DRUGS (4)
  1. FORTEO [Suspect]
     Dates: start: 20071101
  2. LIPITOR [Concomitant]
     Indication: BLOOD CHOLESTEROL INCREASED
  3. ASPIRIN [Concomitant]
     Indication: BLOOD CHOLESTEROL INCREASED
     Dosage: 325 MG, UNK
  4. SPIRIVA [Concomitant]
     Indication: EMPHYSEMA

REACTIONS (2)
  - ANEURYSM [None]
  - MUSCULAR WEAKNESS [None]
